FAERS Safety Report 8428883 (Version 4)
Quarter: 2013Q4

REPORT INFORMATION
  Report Type: Spontaneous
  Country: US (occurrence: US)
  Receive Date: 20120227
  Receipt Date: 20131223
  Transmission Date: 20140711
  Serious: Yes (Hospitalization)
  Sender: FDA-Public Use
  Company Number: US-GLAXOSMITHKLINE-A0908341A

PATIENT
  Age: 74 Year
  Sex: Male
  Weight: 86.4 kg

DRUGS (1)
  1. AVANDIA [Suspect]
     Indication: DIABETES MELLITUS
     Dosage: 4MG TWICE PER DAY
     Route: 048
     Dates: start: 20050505, end: 200712

REACTIONS (3)
  - Cerebrovascular accident [Unknown]
  - Transient ischaemic attack [Unknown]
  - Cardiovascular disorder [Unknown]
